FAERS Safety Report 4472025-1 (Version None)
Quarter: 2004Q4

REPORT INFORMATION
  Report Type: 
  Country: None (occurrence: None)
  Receive Date: 20041006
  Receipt Date: 20040922
  Transmission Date: 20050328
  Serious: Yes (Hospitalization)
  Sender: FDA-Public Use
  Company Number: A-CH2004-07485

PATIENT
  Age: 76 Year
  Sex: Female
  Weight: 62 kg

DRUGS (8)
  1. TRACLEER [Suspect]
     Indication: PULMONARY HYPERTENSION
     Dosage: 62.5 MG, BID, ORAL : 125 MG, BID, ORAL
     Route: 048
     Dates: start: 20031002, end: 20031001
  2. TRACLEER [Suspect]
     Indication: PULMONARY HYPERTENSION
     Dosage: 62.5 MG, BID, ORAL : 125 MG, BID, ORAL
     Route: 048
     Dates: start: 20031001, end: 20040820
  3. SPIRONOLACTONE [Concomitant]
  4. SILDENAFIL [Concomitant]
  5. PANTOZOL (PANTOPRAZOLE SODIUM) [Concomitant]
  6. PHENPROCOUMON [Concomitant]
  7. VENTOLIN [Concomitant]
  8. OXIS (FORMOTEROL) [Concomitant]

REACTIONS (5)
  - ALANINE AMINOTRANSFERASE INCREASED [None]
  - ASPARTATE AMINOTRANSFERASE INCREASED [None]
  - BLOOD ALKALINE PHOSPHATASE INCREASED [None]
  - BLOOD BILIRUBIN INCREASED [None]
  - LIVER FUNCTION TEST ABNORMAL [None]
